FAERS Safety Report 6141091-X (Version None)
Quarter: 2009Q2

REPORT INFORMATION
  Report Type: 
  Country: None (occurrence: None)
  Receive Date: 20090402
  Receipt Date: 20090326
  Transmission Date: 20091009
  Serious: Yes (Life-Threatening, Hospitalization)
  Sender: FDA-Public Use
  Company Number: PHHY2009JP11253

PATIENT
  Age: 75 Year
  Sex: Male

DRUGS (1)
  1. ZOMETA [Suspect]
     Indication: METASTASES TO BONE
     Dosage: 4 MG (INTERVAL NOT PROVIDED)
     Route: 042

REACTIONS (6)
  - ABSCESS ORAL [None]
  - BONE DISORDER [None]
  - OSTEOMYELITIS [None]
  - PURULENT DISCHARGE [None]
  - SINUSITIS [None]
  - TOOTH EXTRACTION [None]
